FAERS Safety Report 8055990-5 (Version None)
Quarter: 2012Q1

REPORT INFORMATION
  Report Type: 
  Country: None (occurrence: None)
  Receive Date: 20120119
  Receipt Date: 20111202
  Transmission Date: 20120608
  Serious: Yes (Other)
  Sender: FDA-Public Use
  Company Number: US-ROCHE-741527

PATIENT
  Sex: Male
  Weight: 81.6 kg

DRUGS (4)
  1. ACCUTANE [Suspect]
     Indication: ACNE
     Route: 065
     Dates: start: 19900101, end: 19910301
  2. NAPROSYN [Concomitant]
     Indication: PAIN
  3. MOTRIN [Concomitant]
     Indication: PAIN
  4. IBUPROFEN (ADVIL) [Concomitant]
     Indication: PAIN

REACTIONS (6)
  - INFLAMMATORY BOWEL DISEASE [None]
  - NEPHROLITHIASIS [None]
  - ORAL HERPES [None]
  - DEPRESSION [None]
  - IRRITABLE BOWEL SYNDROME [None]
  - COLITIS ULCERATIVE [None]
